FAERS Safety Report 13469087 (Version 2)
Quarter: 2017Q2

REPORT INFORMATION
  Report Type: Spontaneous
  Country: GB (occurrence: GB)
  Receive Date: 20170421
  Receipt Date: 20170505
  Transmission Date: 20170830
  Serious: Yes (Hospitalization, Other)
  Sender: FDA-Public Use
  Company Number: GB-PFIZER INC-2017168040

PATIENT
  Age: 70 Year
  Sex: Male

DRUGS (22)
  1. ZOPICLONE [Concomitant]
     Active Substance: ZOPICLONE
     Dosage: 7.5 MG, 1X/DAY (NIGHT)
  2. FELODIPINE. [Concomitant]
     Active Substance: FELODIPINE
     Dosage: 2.5 MG, 1X/DAY (MORNING)
  3. BISOPROLOL [Concomitant]
     Active Substance: BISOPROLOL
     Dosage: 5 MG, 1X/DAY (MORNING)
  4. METHOTREXATE SODIUM. [Suspect]
     Active Substance: METHOTREXATE SODIUM
     Dosage: 25 MG, WEEKLY (MONDAY)
     Route: 048
  5. COCODAMOL [Concomitant]
     Active Substance: ACETAMINOPHEN\CODEINE PHOSPHATE
     Dosage: 2 DF, 3X/DAY
  6. BISACODYL. [Concomitant]
     Active Substance: BISACODYL
     Indication: CONSTIPATION
     Dosage: 10 MG, 1X/DAY
  7. SALBUTAMOL [Concomitant]
     Active Substance: ALBUTEROL
     Dosage: 2 DF, 4X/DAY
     Route: 055
  8. LAXIDO [Concomitant]
     Active Substance: POLYETHYLENE GLYCOL 3350\POTASSIUM CHLORIDE\SODIUM BICARBONATE\SODIUM CHLORIDE
     Dosage: 1 DF, 1X/DAY
  9. PRAVASTATIN. [Concomitant]
     Active Substance: PRAVASTATIN
     Dosage: 40 MG, 1X/DAY (NIGHT)
  10. TRIMETHOPRIM. [Interacting]
     Active Substance: TRIMETHOPRIM
     Dosage: UNK
     Route: 048
  11. FOSTAIR [Concomitant]
     Active Substance: BECLOMETHASONE\FORMOTEROL
     Dosage: 1 DF, 2X/DAY
     Route: 055
  12. AZITHROMYCIN ANHYDROUS. [Concomitant]
     Active Substance: AZITHROMYCIN ANHYDROUS
     Dosage: 250 MG, (3 TIMES PER WEEK)
  13. FOLIC ACID. [Concomitant]
     Active Substance: FOLIC ACID
     Dosage: 1 DF, (6 TIMES PER WEEK)
  14. DIGOXIN. [Concomitant]
     Active Substance: DIGOXIN
     Dosage: 250 UG, 1X/DAY (MORNING)
  15. DIAZEPAM. [Concomitant]
     Active Substance: DIAZEPAM
     Dosage: 11 MG, (2MG THREE TIMES A DAY AND ADDITIONAL 5MG AT NIGHT)
  16. FINASTERIDE. [Concomitant]
     Active Substance: FINASTERIDE
     Dosage: 5 MG, 1X/DAY (MORNING)
  17. OXYCODONE [Concomitant]
     Active Substance: OXYCODONE
     Dosage: 100 MG, 2X/DAY (80+20 IN MORNING)
  18. MIRTAZAPINE. [Concomitant]
     Active Substance: MIRTAZAPINE
     Dosage: 45 MG, 1X/DAY (NIGHT)
  19. WARFARIN [Concomitant]
     Active Substance: WARFARIN
     Dosage: UNK
  20. TAMSULOSIN [Concomitant]
     Active Substance: TAMSULOSIN
     Dosage: 400 UG, 1X/DAY (MORNING)
  21. ISMO [Concomitant]
     Active Substance: ISOSORBIDE MONONITRATE
     Dosage: 30 MG, 1X/DAY (MORNING)
  22. AMITRIPTYLINE [Concomitant]
     Active Substance: AMITRIPTYLINE
     Dosage: 100 MG, 1X/DAY (NIGHT)

REACTIONS (3)
  - Drug interaction [Unknown]
  - Neutropenia [Unknown]
  - Contraindicated product administered [Unknown]
